FAERS Safety Report 11303086 (Version 1)
Quarter: 2015Q3

REPORT INFORMATION
  Report Type: Report from Study
  Country: GB (occurrence: None)
  Receive Date: 20150717
  Receipt Date: 20150717
  Transmission Date: 20151125
  Serious: Yes (Other)
  Sender: FDA-Public Use
  Company Number: BTG00296

PATIENT
  Age: 77 Year
  Sex: Female

DRUGS (9)
  1. ATORVASTATIN (ATORVASTATIN CALCIUM) [Concomitant]
  2. DIGIFAB [Suspect]
     Active Substance: OVINE DIGOXIN IMMUNE FAB
     Indication: TOXICITY TO VARIOUS AGENTS
     Dosage: VIALS
     Dates: start: 20150627
  3. DIGOXIN (DIGOXIN) [Suspect]
     Active Substance: DIGOXIN
     Indication: PRODUCT USED FOR UNKNOWN INDICATION
  4. ENALPRIL (ENALPRIL MALEATE) [Concomitant]
  5. BUMETANIDE (BUMETANIDE) [Concomitant]
     Active Substance: BUMETANIDE
  6. PIOGLITAZONE (PIOGLITAZONE HYDROCHLORIDE) [Concomitant]
  7. AMLODIPINE (AMLODIPINE BESILATE) [Concomitant]
  8. WARFAR (WARFARIN SODIUM) [Concomitant]
  9. GLICLAZIDE (GLICLAZIDE) [Concomitant]
     Active Substance: GLICLAZIDE

REACTIONS (4)
  - Lethargy [None]
  - Bradycardia [None]
  - Drug effect incomplete [None]
  - Toxicity to various agents [None]

NARRATIVE: CASE EVENT DATE: 20150707
